FAERS Safety Report 5392715-6 (Version None)
Quarter: 2007Q3

REPORT INFORMATION
  Report Type: 
  Country: None (occurrence: None)
  Receive Date: 20070720
  Receipt Date: 20070710
  Transmission Date: 20080115
  Serious: Yes (Other)
  Sender: FDA-Public Use
  Company Number: US-PFIZER INC-2004072731

PATIENT
  Sex: Female

DRUGS (1)
  1. LIPITOR [Suspect]

REACTIONS (6)
  - COUGH [None]
  - GAIT DISTURBANCE [None]
  - MUSCLE SPASMS [None]
  - NEPHROLITHIASIS [None]
  - STOMACH DISCOMFORT [None]
  - URETHRAL HAEMORRHAGE [None]
